FAERS Safety Report 20778093 (Version 1)
Quarter: 2022Q2

REPORT INFORMATION
  Report Type: Spontaneous
  Country: US (occurrence: None)
  Receive Date: 20220502
  Receipt Date: 20220502
  Transmission Date: 20220721
  Serious: Yes (Hospitalization)
  Sender: FDA-Public Use
  Company Number: None

PATIENT
  Sex: Male

DRUGS (2)
  1. TAFINLAR [Suspect]
     Active Substance: DABRAFENIB MESYLATE
     Indication: Cholangiocarcinoma
     Dosage: FREQUENCY : TWICE A DAY;?
     Route: 048
  2. Mekinist 0.5mg tablet [Concomitant]

REACTIONS (1)
  - Pyrexia [None]
